FAERS Safety Report 25097031 (Version 1)
Quarter: 2025Q1

REPORT INFORMATION
  Report Type: Spontaneous
  Country: US (occurrence: US)
  Receive Date: 20250319
  Receipt Date: 20250319
  Transmission Date: 20250409
  Serious: No
  Sender: SUNOVION
  Company Number: US-SMPA-2025SPA002325AA

PATIENT

DRUGS (1)
  1. ORGOVYX [Suspect]
     Active Substance: RELUGOLIX
     Route: 048

REACTIONS (3)
  - Mood altered [Unknown]
  - Night sweats [Unknown]
  - Therapy interrupted [Unknown]
